FAERS Safety Report 5383473-X (Version None)
Quarter: 2007Q3

REPORT INFORMATION
  Report Type: 
  Country: None (occurrence: None)
  Receive Date: 20070710
  Receipt Date: 20070628
  Transmission Date: 20080115
  Serious: Yes (Hospitalization)
  Sender: FDA-Public Use
  Company Number: FR-ELI_LILLY_AND_COMPANY-FR200707000126

PATIENT
  Age: 77 Year
  Sex: Female

DRUGS (5)
  1. EVISTA [Suspect]
     Indication: OSTEOPOROSIS
     Dosage: 60 MG, DAILY (1/D)
     Route: 048
     Dates: start: 20050101, end: 20070501
  2. IRBESARTAN [Concomitant]
     Dosage: 150 MG, UNK
     Route: 048
  3. DEDROGYL [Concomitant]
  4. CIMETIDINE HCL [Concomitant]
  5. CRESTOR [Concomitant]

REACTIONS (2)
  - ANAEMIA [None]
  - DEEP VEIN THROMBOSIS [None]
